FAERS Safety Report 24959544 (Version 1)
Quarter: 2025Q1

REPORT INFORMATION
  Report Type: Spontaneous
  Country: US (occurrence: US)
  Receive Date: 20250212
  Receipt Date: 20250212
  Transmission Date: 20250409
  Serious: No
  Sender: ROCHE
  Company Number: US-ROCHE-10000201128

PATIENT
  Age: 26 Year
  Sex: Male

DRUGS (1)
  1. RITUXAN [Suspect]
     Active Substance: RITUXIMAB
     Indication: Multiple sclerosis
     Route: 042

REACTIONS (4)
  - Off label use [Unknown]
  - Urticaria [Unknown]
  - Pruritus [Unknown]
  - Oropharyngeal pain [Unknown]
